FAERS Safety Report 6894470-7 (Version None)
Quarter: 2010Q3

REPORT INFORMATION
  Report Type: 
  Country: None (occurrence: None)
  Receive Date: 20100728
  Receipt Date: 20100714
  Transmission Date: 20110219
  Serious: Yes (Life-Threatening)
  Sender: FDA-Public Use
  Company Number: GB-DEXPHARM-20101027

PATIENT
  Age: 30 Year
  Sex: Female

DRUGS (2)
  1. CHLORAPREP [Suspect]
     Dosage: TOPICAL
     Route: 061
     Dates: start: 20100430, end: 20100430
  2. ANTIBIOTICS NOS [Concomitant]

REACTIONS (3)
  - AGITATION [None]
  - ANAPHYLACTIC REACTION [None]
  - SKIN TEST POSITIVE [None]
